FAERS Safety Report 25714957 (Version 2)
Quarter: 2025Q3

REPORT INFORMATION
  Report Type: Spontaneous
  Country: US (occurrence: US)
  Receive Date: 20250822
  Receipt Date: 20250909
  Transmission Date: 20251021
  Serious: No
  Sender: PFIZER
  Company Number: US-PFIZER INC-202500162973

PATIENT
  Age: 7 Year
  Sex: Female

DRUGS (2)
  1. GENOTROPIN [Suspect]
     Active Substance: SOMATROPIN
     Indication: Septo-optic dysplasia
     Dosage: 0.8MG, NIGHTLY
  2. GENOTROPIN [Suspect]
     Active Substance: SOMATROPIN
     Indication: Hypothalamo-pituitary disorder

REACTIONS (2)
  - Device difficult to use [Unknown]
  - Device leakage [Unknown]
